FAERS Safety Report 9365058 (Version 1)
Quarter: 2013Q2

REPORT INFORMATION
  Report Type: Spontaneous
  Country: US (occurrence: US)
  Receive Date: 20130624
  Receipt Date: 20130624
  Transmission Date: 20140414
  Serious: Yes (Hospitalization, Other)
  Sender: FDA-Public Use
  Company Number: US-PFIZER INC-2013187602

PATIENT
  Sex: Male
  Weight: 90.7 kg

DRUGS (2)
  1. LYRICA [Suspect]
     Indication: PHLEBECTOMY
     Dosage: UNK
  2. OXYCONTIN [Suspect]
     Dosage: UNK

REACTIONS (2)
  - Off label use [Unknown]
  - Poisoning [Unknown]
